FAERS Safety Report 11750321 (Version 2)
Quarter: 2015Q4

REPORT INFORMATION
  Report Type: Spontaneous
  Country: US (occurrence: US)
  Receive Date: 20151118
  Receipt Date: 20151203
  Transmission Date: 20160304
  Serious: Yes (Death)
  Sender: FDA-Public Use
  Company Number: US-ASTELLAS-2015US042941

PATIENT
  Age: 76 Year
  Sex: Male

DRUGS (1)
  1. TARCEVA [Suspect]
     Active Substance: ERLOTINIB HYDROCHLORIDE
     Indication: METASTATIC NEOPLASM
     Route: 065
     Dates: start: 20140422

REACTIONS (1)
  - Death [Fatal]

NARRATIVE: CASE EVENT DATE: 20151005
